FAERS Safety Report 10334022 (Version 1)
Quarter: 2014Q3

REPORT INFORMATION
  Report Type: Spontaneous
  Country: US (occurrence: US)
  Receive Date: 20140723
  Receipt Date: 20140723
  Transmission Date: 20150326
  Serious: Yes (Other)
  Sender: FDA-Public Use
  Company Number: US-BRISTOL-MYERS SQUIBB COMPANY-21190913

PATIENT
  Age: 69 Year
  Sex: Male
  Weight: 89.34 kg

DRUGS (4)
  1. CANASA [Concomitant]
     Active Substance: MESALAMINE
  2. LOSARTAN [Concomitant]
     Active Substance: LOSARTAN
  3. ONGLYZA [Suspect]
     Active Substance: SAXAGLIPTIN HYDROCHLORIDE
     Dosage: MISSED DOSE
  4. METFORMIN HCL [Concomitant]
     Active Substance: METFORMIN HYDROCHLORIDE

REACTIONS (2)
  - Retinal oedema [Unknown]
  - Hypermetropia [Unknown]
